FAERS Safety Report 19123594 (Version 2)
Quarter: 2021Q3

REPORT INFORMATION
  Report Type: Spontaneous
  Country: US (occurrence: US)
  Receive Date: 20210412
  Receipt Date: 20210715
  Transmission Date: 20211014
  Serious: No
  Sender: FDA-Public Use
  Company Number: US-PFIZER INC-2020291032

PATIENT
  Age: 82 Year
  Sex: Male
  Weight: 73.94 kg

DRUGS (2)
  1. TOVIAZ [Suspect]
     Active Substance: FESOTERODINE FUMARATE
     Indication: POLLAKIURIA
     Dosage: 8 MG, 1X/DAY (IN THE EVENING)
     Route: 048
  2. TOVIAZ [Suspect]
     Active Substance: FESOTERODINE FUMARATE
     Indication: NOCTURIA
     Dosage: 10 MG, 1X/DAY (EVENING)
     Dates: start: 202001, end: 202007

REACTIONS (5)
  - Oropharyngeal discomfort [Unknown]
  - Frustration tolerance decreased [Unknown]
  - Product prescribing error [Unknown]
  - Off label use [Unknown]
  - Memory impairment [Unknown]

NARRATIVE: CASE EVENT DATE: 202001
